FAERS Safety Report 6948282-6 (Version None)
Quarter: 2010Q3

REPORT INFORMATION
  Report Type: 
  Country: None (occurrence: None)
  Receive Date: 20100828
  Receipt Date: 20091026
  Transmission Date: 20110219
  Serious: No
  Sender: FDA-Public Use
  Company Number: US-ABBOTT-09P-163-0605925-00

PATIENT
  Sex: Female
  Weight: 54.48 kg

DRUGS (7)
  1. NIASPAN [Suspect]
     Indication: BLOOD CHOLESTEROL INCREASED
     Dates: start: 20080101
  2. SIMVASTATIN [Suspect]
     Indication: BLOOD CHOLESTEROL INCREASED
     Dates: end: 20090701
  3. SIMVASTATIN [Suspect]
     Dates: start: 20090801
  4. LEVOXYL [Concomitant]
     Indication: THYROID DISORDER
     Dosage: 1/2 TABLET DAILY
  5. IBUPROFEN [Concomitant]
     Indication: MYALGIA
  6. IBUPROFEN [Concomitant]
     Indication: ARTHRALGIA
  7. ASPIRIN [Concomitant]
     Indication: PROPHYLAXIS
     Dates: end: 20090101

REACTIONS (6)
  - ARTHRALGIA [None]
  - BLOOD CHOLESTEROL INCREASED [None]
  - FLUSHING [None]
  - HAEMORRHAGIC DIATHESIS [None]
  - MYALGIA [None]
  - PRURITUS [None]
